FAERS Safety Report 4651625-X (Version None)
Quarter: 2005Q2

REPORT INFORMATION
  Report Type: 
  Country: None (occurrence: None)
  Receive Date: 20050404
  Receipt Date: 20041104
  Transmission Date: 20051028
  Serious: No
  Sender: FDA-Public Use
  Company Number: USA041183291

PATIENT
  Age: 64 Year
  Sex: Female

DRUGS (4)
  1. CYMBALTA [Suspect]
     Indication: INFLAMMATION
     Dosage: 30 MG
     Dates: start: 20041001, end: 20041001
  2. PLAQUENIL [Concomitant]
  3. CALTRATE (CALCIUM CARBONATE) [Concomitant]
  4. MULTIVITAMIN [Concomitant]

REACTIONS (2)
  - FEELING ABNORMAL [None]
  - SOMNOLENCE [None]
